FAERS Safety Report 20682362 (Version 1)
Quarter: 2022Q2

REPORT INFORMATION
  Report Type: Spontaneous
  Country: HR (occurrence: HR)
  Receive Date: 20220407
  Receipt Date: 20220407
  Transmission Date: 20220721
  Serious: Yes (Other)
  Sender: FDA-Public Use
  Company Number: None

PATIENT
  Sex: Female

DRUGS (3)
  1. OXAZEPAM [Suspect]
     Active Substance: OXAZEPAM
     Dosage: UNIT DOSE: 450 MG, FREQUENCY TIME 1 DAY, DURATION 1 DAY
     Route: 048
     Dates: start: 20211117, end: 20211117
  2. LORAZEPAM [Suspect]
     Active Substance: LORAZEPAM
     Dosage: DF= BLISTER, UNIT DOSE: 1 DF, FREQUENCY TIME 1 DAY, DURATION 1 DAY
     Route: 048
     Dates: start: 20211117, end: 20211117
  3. XANAX XR [Suspect]
     Active Substance: ALPRAZOLAM
     Dosage: UNIT DOSE: 30 MG,FREQUENCY TIME 1 DAY, DURATION 1 DAY
     Route: 048
     Dates: start: 20211117, end: 20211117

REACTIONS (3)
  - Intentional overdose [Unknown]
  - Suicide attempt [Unknown]
  - No adverse event [Unknown]

NARRATIVE: CASE EVENT DATE: 20211117
